FAERS Safety Report 6931235-1 (Version None)
Quarter: 2010Q3

REPORT INFORMATION
  Report Type: 
  Country: None (occurrence: None)
  Receive Date: 20100816
  Receipt Date: 20100802
  Transmission Date: 20110219
  Serious: Yes (Death, Other)
  Sender: FDA-Public Use
  Company Number: 2010AP001633

PATIENT
  Age: 28 Year
  Sex: Male

DRUGS (7)
  1. MIRTAZAPINE [Suspect]
  2. AMITRIPTYLINE HYDROCHLORIDE [Suspect]
  3. AMPHETAMINE SULFATE [Suspect]
  4. DIAZEPAM [Suspect]
  5. OXAZEPAM [Suspect]
  6. TETRAHYDROCANNABINOL (TETRAHYDROCANNABINOL) [Suspect]
  7. TRAMADOL HCL [Suspect]

REACTIONS (8)
  - ASPIRATION [None]
  - DRUG INTERACTION [None]
  - DRUG TOXICITY [None]
  - HEPATITIS C [None]
  - OBSTRUCTIVE AIRWAYS DISORDER [None]
  - PULMONARY OEDEMA [None]
  - SEROTONIN SYNDROME [None]
  - VOMITING [None]
